FAERS Safety Report 7650996-X (Version None)
Quarter: 2011Q3

REPORT INFORMATION
  Report Type: 
  Country: None (occurrence: None)
  Receive Date: 20110727
  Receipt Date: 20110711
  Transmission Date: 20111222
  Serious: Yes (Life-Threatening, Hospitalization, Other)
  Sender: FDA-Public Use
  Company Number: 2011MA007931

PATIENT
  Age: 28 Year
  Sex: Female

DRUGS (2)
  1. OLANZAPINE [Suspect]
     Indication: INTENTIONAL OVERDOSE
     Dosage: 2000 MG;1X
  2. SERTRALINE HYDROCHLORIDE [Suspect]
     Indication: INTENTIONAL OVERDOSE
     Dosage: 420 MG;1X

REACTIONS (19)
  - EXTRAPYRAMIDAL DISORDER [None]
  - RENAL IMPAIRMENT [None]
  - LUNG INFILTRATION [None]
  - SUICIDE ATTEMPT [None]
  - MULTIPLE DRUG OVERDOSE INTENTIONAL [None]
  - MENTAL DISORDER [None]
  - HYPOREFLEXIA [None]
  - STAPHYLOCOCCUS TEST POSITIVE [None]
  - PROTEIN TOTAL DECREASED [None]
  - HYPERTONIA [None]
  - OPISTHOTONUS [None]
  - MYOCLONUS [None]
  - BLOOD CREATINE INCREASED [None]
  - NEUROLEPTIC MALIGNANT SYNDROME [None]
  - AKINESIA [None]
  - CHILLS [None]
  - OLIGURIA [None]
  - CONTINUOUS HAEMODIAFILTRATION [None]
  - OCULOGYRIC CRISIS [None]
